FAERS Safety Report 5518466-2 (Version None)
Quarter: 2007Q4

REPORT INFORMATION
  Report Type: 
  Country: None (occurrence: None)
  Receive Date: 20071115
  Receipt Date: 20071109
  Transmission Date: 20080405
  Serious: Yes (Other)
  Sender: FDA-Public Use
  Company Number: US-PFIZER INC-2007094573

PATIENT
  Sex: Female
  Weight: 81.6 kg

DRUGS (7)
  1. DETROL LA [Suspect]
     Indication: HYPERTONIC BLADDER
     Dates: start: 20050101, end: 20050101
  2. TRICOR [Concomitant]
     Indication: BLOOD CHOLESTEROL INCREASED
  3. ADVAIR DISKUS 100/50 [Concomitant]
     Indication: ASTHMA
  4. ALBUTEROL [Concomitant]
     Indication: ASTHMA
  5. KLONOPIN [Concomitant]
     Indication: ANXIETY
  6. PAXIL [Concomitant]
     Indication: ANXIETY
  7. PREMARIN [Concomitant]

REACTIONS (8)
  - BODY TEMPERATURE INCREASED [None]
  - DIARRHOEA [None]
  - PAIN [None]
  - PARALYSIS [None]
  - RENAL FAILURE [None]
  - SEPSIS [None]
  - VOMITING [None]
  - WEIGHT DECREASED [None]
